FAERS Safety Report 6235215-3 (Version None)
Quarter: 2009Q2

REPORT INFORMATION
  Report Type: 
  Country: None (occurrence: None)
  Receive Date: 20090615
  Receipt Date: 20090610
  Transmission Date: 20091009
  Serious: Yes (Hospitalization, Disabling, Other)
  Sender: FDA-Public Use
  Company Number: 09GB001850

PATIENT
  Age: 7 Year
  Sex: Female

DRUGS (3)
  1. IBUPROFEN [Suspect]
     Indication: PYREXIA
     Dosage: 100 MG, SINGLE DOSE, ORAL
     Route: 048
  2. FLUCLOXACIN (FLUCLOXACILLIN) [Concomitant]
  3. ANTIBIOTICS [Concomitant]

REACTIONS (6)
  - DEHYDRATION [None]
  - HAEMODIALYSIS [None]
  - RENAL CORTICAL NECROSIS [None]
  - RENAL FAILURE ACUTE [None]
  - RENAL FAILURE CHRONIC [None]
  - RENAL TUBULAR NECROSIS [None]
